FAERS Safety Report 8244858-7 (Version None)
Quarter: 2012Q1

REPORT INFORMATION
  Report Type: 
  Country: None (occurrence: None)
  Receive Date: 20120329
  Receipt Date: 20110923
  Transmission Date: 20120608
  Serious: No
  Sender: FDA-Public Use
  Company Number: US-MYLANLABS-2011S1013378

PATIENT
  Age: 62 Year
  Sex: Female
  Weight: 61.24 kg

DRUGS (7)
  1. FENTANYL-100 [Suspect]
     Indication: OSTEOARTHRITIS
     Dosage: Q72HR
     Route: 062
     Dates: start: 20070901
  2. FENTANYL-100 [Suspect]
     Indication: INTERVERTEBRAL DISC DEGENERATION
     Dosage: Q72HR
     Route: 062
     Dates: start: 20070901
  3. QUINAPRIL [Concomitant]
     Indication: HYPERTENSION
  4. FENTANYL-100 [Suspect]
     Indication: PAIN
     Dosage: Q72HR
     Route: 062
     Dates: start: 20070901
  5. FENTANYL-100 [Suspect]
     Indication: RHEUMATOID ARTHRITIS
     Dosage: Q72HR
     Route: 062
     Dates: start: 20070901
  6. CITALOPRAM HYDROBROMIDE [Concomitant]
     Indication: DEPRESSION
  7. HYDROCHLOROTHIAZIDE [Concomitant]
     Indication: FLUID RETENTION

REACTIONS (6)
  - DRUG INEFFECTIVE [None]
  - DIARRHOEA [None]
  - HYPERHIDROSIS [None]
  - RETCHING [None]
  - MALAISE [None]
  - PAIN [None]
